FAERS Safety Report 8884369 (Version 1)
Quarter: 2012Q4

REPORT INFORMATION
  Report Type: 
  Country: US (occurrence: US)
  Receive Date: 20121102
  Receipt Date: 20121102
  Transmission Date: 20130627
  Serious: No
  Sender: FDA-Public Use
  Company Number: US-ASTRAZENECA-2012SE22132

PATIENT
  Age: 50 Year
  Sex: Male

DRUGS (2)
  1. CRESTOR [Suspect]
     Route: 048
  2. NOVOLOG [Concomitant]
     Dates: start: 20120330

REACTIONS (4)
  - Laboratory test abnormal [Unknown]
  - Type 1 diabetes mellitus [Unknown]
  - Renal impairment [Unknown]
  - Blood triglycerides increased [Unknown]
